FAERS Safety Report 6287216-7 (Version None)
Quarter: 2009Q3

REPORT INFORMATION
  Report Type: 
  Country: None (occurrence: None)
  Receive Date: 20090728
  Receipt Date: 20090716
  Transmission Date: 20100115
  Serious: Yes (Other)
  Sender: FDA-Public Use
  Company Number: US-PFIZER INC-2009176237

PATIENT
  Sex: Female
  Weight: 78.458 kg

DRUGS (2)
  1. CHANTIX [Suspect]
     Indication: SMOKING CESSATION THERAPY
     Dosage: 0.5 MG, 1X/DAY
     Route: 048
     Dates: start: 20090224, end: 20090501
  2. HYDROCHLOROTHIAZIDE [Concomitant]
     Dosage: UNK

REACTIONS (8)
  - ABNORMAL BEHAVIOUR [None]
  - CONSTIPATION [None]
  - DRUG WITHDRAWAL SYNDROME [None]
  - FLATULENCE [None]
  - HOMICIDAL IDEATION [None]
  - IRRITABILITY [None]
  - SOMNOLENCE [None]
  - WEIGHT INCREASED [None]
